FAERS Safety Report 12835089 (Version 2)
Quarter: 2016Q4

REPORT INFORMATION
  Report Type: Spontaneous
  Country: DE (occurrence: DE)
  Receive Date: 20161010
  Receipt Date: 20161013
  Transmission Date: 20170207
  Serious: Yes (Hospitalization)
  Sender: FDA-Public Use
  Company Number: DE-009507513-1512DEU006057

PATIENT
  Age: 56 Year
  Sex: Female
  Weight: 72 kg

DRUGS (2)
  1. XELEVIA [Suspect]
     Active Substance: SITAGLIPTIN PHOSPHATE
     Indication: BLOOD GLUCOSE INCREASED
     Dosage: 50 MG, QD
     Route: 048
     Dates: start: 201509, end: 20151125
  2. XELEVIA [Suspect]
     Active Substance: SITAGLIPTIN PHOSPHATE
     Indication: BLOOD GLUCOSE INCREASED
     Dosage: 100 MG, QD
     Route: 048
     Dates: start: 20151126

REACTIONS (5)
  - Stress [Unknown]
  - Fatigue [Recovered/Resolved]
  - Accident [Unknown]
  - Drug ineffective [Recovered/Resolved]
  - Rhinorrhoea [Recovered/Resolved]

NARRATIVE: CASE EVENT DATE: 201509
